FAERS Safety Report 11099215 (Version 1)
Quarter: 2015Q2

REPORT INFORMATION
  Report Type: Report from Study
  Country: US (occurrence: US)
  Receive Date: 20150508
  Receipt Date: 20150508
  Transmission Date: 20150821
  Serious: Yes (Life-Threatening, Disabling)
  Sender: FDA-Public Use
  Company Number: US-ACCORD-030599

PATIENT
  Age: 53 Year
  Sex: Female

DRUGS (3)
  1. CARMUSTINE [Suspect]
     Active Substance: CARMUSTINE
     Indication: HODGKIN^S DISEASE
     Dosage: CARMUSTINE 300 MG/M^2 DAY 1 ((TOTAL 300 MG/M^2)
  2. CYCLOPHOSPHAMIDE/CYCLOPHOSPHAMIDE MONOHYDRATE [Suspect]
     Active Substance: CYCLOPHOSPHAMIDE
     Indication: HODGKIN^S DISEASE
     Dosage: CYCLOPHOSPHAMIDE 1500 MG/M^2 DAY 2 TO 5 (TOTAL 6 G/M^2)
  3. ETOPOSIDE. [Suspect]
     Active Substance: ETOPOSIDE
     Indication: HODGKIN^S DISEASE
     Dosage: ETOPOSIDE 700 MG/M^2/D DAYS 2 THROUGH 4 (TOTAL 2100 MG/M^2).

REACTIONS (3)
  - Haemorrhagic infarction [Unknown]
  - Off label use [Unknown]
  - Blindness [Unknown]
